FAERS Safety Report 5533487-1 (Version None)
Quarter: 2007Q4

REPORT INFORMATION
  Report Type: 
  Country: None (occurrence: None)
  Receive Date: 20071120
  Receipt Date: 20070806
  Transmission Date: 20080405
  Serious: No
  Sender: FDA-Public Use
  Company Number: WAES 0705USA05545

PATIENT
  Age: 69 Year
  Sex: Male
  Weight: 142.8831 kg

DRUGS (11)
  1. JANUVIA [Suspect]
     Indication: TYPE 2 DIABETES MELLITUS
     Dosage: 100 MG/DAILY/PO
     Route: 047
     Dates: start: 20070410, end: 20070529
  2. ACTOS [Concomitant]
  3. BUMEX [Concomitant]
  4. COZAAR [Concomitant]
  5. LYRICA [Concomitant]
  6. PLAVIX [Concomitant]
  7. EPOGEN [Concomitant]
  8. PROSCAR [Concomitant]
  9. SYNTHROID [Concomitant]
  10. ZOCOR [Concomitant]
  11. DILTIAZEM HYDROCHLORIDE [Concomitant]

REACTIONS (1)
  - DERMATITIS [None]
